FAERS Safety Report 20006961 (Version 1)
Quarter: 2021Q4

REPORT INFORMATION
  Report Type: Report from Study
  Country: US (occurrence: US)
  Receive Date: 20211028
  Receipt Date: 20211028
  Transmission Date: 20220303
  Serious: Yes (Hospitalization, Other)
  Sender: FDA-Public Use
  Company Number: US-JNJFOC-20211051966

PATIENT
  Sex: Male

DRUGS (6)
  1. INFLIXIMAB [Suspect]
     Active Substance: INFLIXIMAB
     Indication: Inflammatory bowel disease
     Route: 064
     Dates: start: 20090825
  2. INFLIXIMAB [Suspect]
     Active Substance: INFLIXIMAB
     Route: 064
  3. INFLIXIMAB [Suspect]
     Active Substance: INFLIXIMAB
     Route: 064
     Dates: start: 20160411
  4. INFLIXIMAB [Suspect]
     Active Substance: INFLIXIMAB
     Route: 064
  5. INFLIXIMAB [Suspect]
     Active Substance: INFLIXIMAB
     Route: 064
     Dates: start: 201904
  6. USTEKINUMAB [Suspect]
     Active Substance: USTEKINUMAB
     Indication: Inflammatory bowel disease
     Route: 064
     Dates: end: 20210920

REACTIONS (2)
  - Premature baby [Unknown]
  - Foetal exposure during pregnancy [Recovered/Resolved]

NARRATIVE: CASE EVENT DATE: 20210801
